FAERS Safety Report 9254202 (Version 2)
Quarter: 2013Q2

REPORT INFORMATION
  Report Type: Report from Study
  Country: US (occurrence: US)
  Receive Date: 20130425
  Receipt Date: 20130508
  Transmission Date: 20140414
  Serious: Yes (Hospitalization)
  Sender: FDA-Public Use
  Company Number: PHEH2013US009005

PATIENT
  Age: 81 Year
  Sex: Female
  Weight: 100 kg

DRUGS (1)
  1. TOBI [Suspect]
     Indication: BRONCHIECTASIS
     Dosage: 300 MG, BID
     Dates: start: 201102, end: 201206

REACTIONS (2)
  - Ankle fracture [Unknown]
  - Fall [Unknown]
